FAERS Safety Report 9761409 (Version 3)
Quarter: 2014Q1

REPORT INFORMATION
  Report Type: Report from Study
  Country: BR (occurrence: BR)
  Receive Date: 20131216
  Receipt Date: 20140113
  Transmission Date: 20141002
  Serious: Yes (Other)
  Sender: FDA-Public Use
  Company Number: PHHY2013BR102599

PATIENT
  Sex: Female
  Weight: 110 kg

DRUGS (5)
  1. GILENYA [Suspect]
     Indication: MULTIPLE SCLEROSIS
     Dosage: 1 DF, QD
     Route: 048
     Dates: start: 20130806
  2. GILENYA [Suspect]
     Dosage: UNK
  3. ALLESTRA [Suspect]
     Indication: CONTRACEPTION
  4. ALLESTRA [Suspect]
  5. MICARDIS [Concomitant]
     Dosage: 80 MG, UNK

REACTIONS (3)
  - Menstrual disorder [Recovered/Resolved]
  - Treatment failure [Recovered/Resolved]
  - Headache [Recovered/Resolved]
